FAERS Safety Report 15662308 (Version 2)
Quarter: 2018Q4

REPORT INFORMATION
  Report Type: Spontaneous
  Country: JP (occurrence: JP)
  Receive Date: 20181127
  Receipt Date: 20181211
  Transmission Date: 20190205
  Serious: Yes (Other)
  Sender: FDA-Public Use
  Company Number: JP-SA-2018SA324364

PATIENT
  Age: 3 Year
  Sex: Female

DRUGS (7)
  1. OLOPATADINE HYDROCHLORIDE. [Suspect]
     Active Substance: OLOPATADINE HYDROCHLORIDE
     Indication: HYPERSENSITIVITY
  2. CETIRIZINE HYDROCHLORIDE. [Concomitant]
     Active Substance: CETIRIZINE HYDROCHLORIDE
     Dosage: UNK
     Dates: start: 20170403
  3. EPINASTINE HYDROCHLORIDE. [Suspect]
     Active Substance: EPINASTINE HYDROCHLORIDE
     Indication: HYPERSENSITIVITY
     Dosage: 0.6 G, PRN
     Dates: start: 20170406
  4. CLEMASTINE FUMARATE. [Suspect]
     Active Substance: CLEMASTINE FUMARATE
     Indication: UPPER RESPIRATORY TRACT INFLAMMATION
     Dosage: 0.15 G, QD
     Route: 048
     Dates: start: 20170214, end: 20170302
  5. LEVOCETIRIZINE [Suspect]
     Active Substance: LEVOCETIRIZINE
     Indication: UPPER RESPIRATORY TRACT INFLAMMATION
     Dosage: 2.5 ML, BID
     Route: 048
     Dates: start: 20170511, end: 20170527
  6. EPINASTINE HYDROCHLORIDE. [Concomitant]
     Active Substance: EPINASTINE HYDROCHLORIDE
     Dosage: UNK
     Dates: start: 20170403
  7. OLOPATADINE HYDROCHLORIDE. [Suspect]
     Active Substance: OLOPATADINE HYDROCHLORIDE
     Indication: UPPER RESPIRATORY TRACT INFLAMMATION
     Dosage: 0.5 G, BID
     Route: 048
     Dates: start: 20170311, end: 20170321

REACTIONS (6)
  - Emotional distress [Unknown]
  - Alopecia totalis [Recovering/Resolving]
  - Autoimmune disorder [Recovering/Resolving]
  - Off label use [Unknown]
  - Alopecia areata [Recovering/Resolving]
  - Quality of life decreased [Unknown]

NARRATIVE: CASE EVENT DATE: 20170511
